FAERS Safety Report 11734057 (Version 1)
Quarter: 2015Q4

REPORT INFORMATION
  Report Type: Spontaneous
  Country: US (occurrence: None)
  Receive Date: 20151112
  Receipt Date: 20151112
  Transmission Date: 20160304
  Serious: No
  Sender: FDA-Public Use
  Company Number: None

PATIENT
  Age: 79 Year
  Sex: Female
  Weight: 68.04 kg

DRUGS (13)
  1. LOSARTAN. [Concomitant]
     Active Substance: LOSARTAN
  2. VITAMIN D [Concomitant]
     Active Substance: CHOLECALCIFEROL
  3. LIPITOR [Suspect]
     Active Substance: ATORVASTATIN CALCIUM
     Indication: MYOCARDIAL INFARCTION
     Route: 048
     Dates: start: 20090315
  4. ISOSORBIDEMONONITRATE [Concomitant]
  5. TURMERIC [Concomitant]
     Active Substance: TURMERIC
  6. METOPROLOL [Concomitant]
     Active Substance: METOPROLOL
  7. COQ10 [Concomitant]
     Active Substance: UBIDECARENONE
  8. MONTELUKAST [Concomitant]
     Active Substance: MONTELUKAST SODIUM
  9. VITAMINC [Concomitant]
  10. BOSWELLIA [Concomitant]
  11. ASPIRIN. [Concomitant]
     Active Substance: ASPIRIN
  12. RESVERATROL [Concomitant]
     Active Substance: RESVERATROL
  13. VITAMINBCOMPLEX [Concomitant]

REACTIONS (1)
  - Muscle spasms [None]
